FAERS Safety Report 5013473-0 (Version None)
Quarter: 2006Q2

REPORT INFORMATION
  Report Type: 
  Country: None (occurrence: None)
  Receive Date: 20060525
  Receipt Date: 20060525
  Transmission Date: 20061013
  Serious: Yes (Life-Threatening)
  Sender: FDA-Public Use
  Company Number: None

PATIENT
  Age: 64 Year
  Sex: Female

DRUGS (1)
  1. OXAPROZIN [Suspect]
     Indication: RHEUMATOID ARTHRITIS
     Dosage: 600 MG   DAILY  PO   (DURATION: A FEW DAYS)
     Route: 048

REACTIONS (2)
  - ANGIONEUROTIC OEDEMA [None]
  - URTICARIA [None]
